FAERS Safety Report 19895892 (Version 2)
Quarter: 2021Q4

REPORT INFORMATION
  Report Type: Spontaneous
  Country: DE (occurrence: DE)
  Receive Date: 20210929
  Receipt Date: 20211011
  Transmission Date: 20220303
  Serious: Yes (Hospitalization, Other)
  Sender: FDA-Public Use
  Company Number: DE-SA-SAC20210927000343

PATIENT
  Age: 50 Year
  Sex: Female

DRUGS (1)
  1. DUPIXENT [Suspect]
     Active Substance: DUPILUMAB
     Indication: Dermatitis atopic
     Dosage: 300 MG, QOW
     Route: 058
     Dates: start: 20200127

REACTIONS (1)
  - Bladder cancer recurrent [Not Recovered/Not Resolved]

NARRATIVE: CASE EVENT DATE: 20210618
